FAERS Safety Report 21483325 (Version 1)
Quarter: 2022Q4

REPORT INFORMATION
  Report Type: Spontaneous
  Country: US (occurrence: US)
  Receive Date: 20221020
  Receipt Date: 20221020
  Transmission Date: 20230113
  Serious: Yes (Other)
  Sender: FDA-Public Use
  Company Number: US-SA-SAC20221018000779

PATIENT
  Age: 45 Year
  Sex: Female

DRUGS (1)
  1. ZANTAC [Suspect]
     Active Substance: RANITIDINE HYDROCHLORIDE
     Indication: Gastrooesophageal reflux disease
     Dosage: 150 MG, QD
     Dates: start: 199609, end: 202006

REACTIONS (4)
  - Intraductal proliferative breast lesion [Unknown]
  - Breast cancer stage III [Unknown]
  - Hormone receptor positive breast cancer [Unknown]
  - Aspiration [Unknown]

NARRATIVE: CASE EVENT DATE: 20060901
